FAERS Safety Report 14014015 (Version 14)
Quarter: 2024Q3

REPORT INFORMATION
  Report Type: Spontaneous
  Country: US (occurrence: US)
  Receive Date: 20170926
  Receipt Date: 20240709
  Transmission Date: 20241017
  Serious: No
  Sender: AMGEN
  Company Number: US-AMGEN-USASP2017143522

PATIENT
  Age: 66 Year
  Sex: Female
  Weight: 66 kg

DRUGS (2)
  1. ENBREL [Suspect]
     Active Substance: BENZYL ALCOHOL\ETANERCEPT
     Indication: Rheumatoid arthritis
     Dosage: UNK
     Route: 058
     Dates: start: 2012
  2. HUMIRA [Suspect]
     Active Substance: ADALIMUMAB
     Indication: Rheumatoid arthritis
     Dosage: UNK
     Route: 058
     Dates: start: 2012

REACTIONS (3)
  - Rash [Unknown]
  - Urticaria [Unknown]
  - Drug hypersensitivity [Unknown]
